FAERS Safety Report 19444768 (Version 1)
Quarter: 2021Q2

REPORT INFORMATION
  Report Type: Spontaneous
  Country: GB (occurrence: GB)
  Receive Date: 20210621
  Receipt Date: 20210621
  Transmission Date: 20210717
  Serious: Yes (Other)
  Sender: FDA-Public Use
  Company Number: GB-MYLANLABS-2021M1036207

PATIENT
  Age: 28 Year
  Sex: Female
  Weight: 46 kg

DRUGS (6)
  1. CYCLIZINE [Concomitant]
     Active Substance: CYCLIZINE
     Dosage: WHEN REQUIRED
     Dates: start: 20210607
  2. SUMATRIPTAN. [Suspect]
     Active Substance: SUMATRIPTAN
     Indication: RASH
     Dosage: 50 MILLIGRAM
     Route: 048
  3. HYDROCORTISONE. [Concomitant]
     Active Substance: HYDROCORTISONE
     Dosage: USE SPARINGLY TWICE DAILY TO NECK AREA. **MAX 10 DAYS**
     Dates: start: 20210316
  4. ZOLMITRIPTAN. [Concomitant]
     Active Substance: ZOLMITRIPTAN
     Dosage: 1 TABLET(S) AT THE ONSET OF MIGRAINE ATTACK. CAN REPEAT DOSE AFTER 2 HOURS IF MIGRAINE RECURS
     Dates: start: 20210611
  5. PROCHLORPERAZINE. [Concomitant]
     Active Substance: PROCHLORPERAZINE
     Dosage: ONE TO TWO TWICE DAILY? PLACE AGAINST GUM BELOW UPPER LIP AND ALLOW TO DISSOLVE
     Dates: start: 20210611
  6. EMLA [Concomitant]
     Active Substance: LIDOCAINE\PRILOCAINE
     Dosage: AS DIRECTED
     Dates: start: 20210413

REACTIONS (4)
  - Rash [Unknown]
  - Peripheral coldness [Unknown]
  - Raynaud^s phenomenon [Recovered/Resolved]
  - Skin discolouration [Unknown]

NARRATIVE: CASE EVENT DATE: 20210409
